FAERS Safety Report 23097502 (Version 2)
Quarter: 2024Q2

REPORT INFORMATION
  Report Type: Spontaneous
  Country: GB (occurrence: GB)
  Receive Date: 20231023
  Receipt Date: 20240513
  Transmission Date: 20240716
  Serious: Yes (Other)
  Sender: FDA-Public Use
  Company Number: None

PATIENT
  Age: 71 Year
  Sex: Female
  Weight: 88 kg

DRUGS (2)
  1. FELODIPINE [Suspect]
     Active Substance: FELODIPINE
     Indication: Hypertension
     Dosage: 10 MILLIGRAM
     Route: 065
  2. METOCLOPRAMIDE [Suspect]
     Active Substance: METOCLOPRAMIDE
     Indication: Hypertension
     Dosage: 10 MILLIGRAM
     Route: 065

REACTIONS (21)
  - Headache [Not Recovered/Not Resolved]
  - Pyrexia [Unknown]
  - Flushing [Unknown]
  - Pollakiuria [Unknown]
  - Fatigue [Unknown]
  - Abdominal pain upper [Unknown]
  - Arthralgia [Unknown]
  - Joint swelling [Unknown]
  - Pain in extremity [Unknown]
  - Poor quality sleep [Unknown]
  - Diarrhoea [Unknown]
  - Abdominal discomfort [Unknown]
  - Eye pain [Unknown]
  - Abnormal dreams [Unknown]
  - Cough [Unknown]
  - Dry throat [Unknown]
  - Nocturia [Unknown]
  - Abdominal distension [Unknown]
  - Diverticulitis [Unknown]
  - Arthritis [Unknown]
  - Dry mouth [Unknown]

NARRATIVE: CASE EVENT DATE: 20231006
